FAERS Safety Report 7117944-2 (Version None)
Quarter: 2010Q4

REPORT INFORMATION
  Report Type: 
  Country: None (occurrence: None)
  Receive Date: 20101118
  Receipt Date: 20101118
  Transmission Date: 20110411
  Serious: Yes (Life-Threatening)
  Sender: FDA-Public Use
  Company Number: None

PATIENT
  Sex: Male
  Weight: 4.4 kg

DRUGS (2)
  1. PROPOFOL [Suspect]
     Indication: ANAESTHESIA
     Dates: start: 20100820, end: 20100820
  2. SEVOFLURANE [Suspect]
     Indication: ANAESTHESIA

REACTIONS (2)
  - HYPOTENSION [None]
  - PULSE ABSENT [None]
